FAERS Safety Report 6746554-1 (Version None)
Quarter: 2010Q2

REPORT INFORMATION
  Report Type: 
  Country: None (occurrence: None)
  Receive Date: 20100526
  Receipt Date: 20100511
  Transmission Date: 20101027
  Serious: Yes (Other)
  Sender: FDA-Public Use
  Company Number: 593127

PATIENT
  Age: 67 Year

DRUGS (8)
  1. PACLITAXEL [Suspect]
     Dosage: 390 MG MILLIGRAM(S), INTRAVENOUS; 390 MILLIGRAM(S); 390 MG MILLIGRAM(S);
     Route: 042
     Dates: start: 20090930, end: 20090930
  2. PACLITAXEL [Suspect]
     Dosage: 390 MG MILLIGRAM(S), INTRAVENOUS; 390 MILLIGRAM(S); 390 MG MILLIGRAM(S);
     Route: 042
     Dates: start: 20091021, end: 20091021
  3. PACLITAXEL [Suspect]
     Dosage: 390 MG MILLIGRAM(S), INTRAVENOUS; 390 MILLIGRAM(S); 390 MG MILLIGRAM(S);
     Route: 042
     Dates: start: 20091112, end: 20091112
  4. CARBOPLATIN [Concomitant]
  5. SOLU-MEDROL [Concomitant]
  6. RANITIDINE HCL [Concomitant]
  7. (POLARAMINE /00043702/) [Concomitant]
  8. (KYTRIL /00178101/) [Concomitant]

REACTIONS (7)
  - CHEST DISCOMFORT [None]
  - DYSPNOEA [None]
  - GENERALISED ERYTHEMA [None]
  - HOT FLUSH [None]
  - HYPERSENSITIVITY [None]
  - MALAISE [None]
  - RASH PRURITIC [None]
